FAERS Safety Report 7501911-0 (Version None)
Quarter: 2011Q2

REPORT INFORMATION
  Report Type: 
  Country: None (occurrence: None)
  Receive Date: 20110523
  Receipt Date: 20110523
  Transmission Date: 20111010
  Serious: Yes (Disabling, Other)
  Sender: FDA-Public Use
  Company Number: None

PATIENT
  Age: 46 Year
  Sex: Female
  Weight: 55.7924 kg

DRUGS (1)
  1. ELIDEL [Suspect]
     Indication: DRY SKIN
     Dosage: 3X'S/DAY THIN LATER TOPICAL
     Route: 061
     Dates: start: 19950101, end: 20110101

REACTIONS (2)
  - APPLICATION SITE REACTION [None]
  - BASAL CELL CARCINOMA [None]
